FAERS Safety Report 10470608 (Version 2)
Quarter: 2014Q3

REPORT INFORMATION
  Report Type: Report from Study
  Country: DE (occurrence: DE)
  Receive Date: 20140923
  Receipt Date: 20140923
  Transmission Date: 20150326
  Serious: Yes (Other)
  Sender: FDA-Public Use
  Company Number: DE-TEVA-505808GER

PATIENT
  Age: 5 Decade
  Sex: Female
  Weight: 55 kg

DRUGS (22)
  1. MCP-DROPS [Concomitant]
     Indication: NAUSEA
     Route: 048
     Dates: start: 20140428
  2. UROMITEXAN [Concomitant]
     Active Substance: MESNA
     Indication: PROPHYLAXIS
     Route: 048
     Dates: start: 20140429
  3. LONQUEX [Suspect]
     Active Substance: LIPEGFILGRASTIM
     Indication: NEUTROPENIA
     Dosage: LAST DOSE PRIOR AE: 11-JUN-2014
     Dates: start: 20140429
  4. ACICLOVIR [Concomitant]
     Active Substance: ACYCLOVIR
     Indication: ANTIVIRAL PROPHYLAXIS
     Dosage: 400 MILLIGRAM DAILY;
     Route: 048
     Dates: start: 20140428
  5. OFLOXACIN. [Concomitant]
     Active Substance: OFLOXACIN
     Indication: BACTERIAL INFECTION
     Route: 048
     Dates: start: 20140428
  6. DOLANTIN [Concomitant]
     Active Substance: MEPERIDINE
     Indication: NAUSEA
     Route: 042
     Dates: start: 20140610, end: 20140610
  7. RITUXIMAB [Concomitant]
     Active Substance: RITUXIMAB
     Indication: NON-HODGKIN^S LYMPHOMA
     Dosage: LAST DOSE PRIOR AE: 10-JUN-2014
     Route: 042
     Dates: start: 20140428
  8. SOLU-DECORTIN [Concomitant]
     Active Substance: PREDNISOLONE SODIUM SUCCINATE
     Indication: ANTIALLERGIC THERAPY
     Route: 042
     Dates: start: 20140428
  9. STEROFUNDIN [Concomitant]
     Indication: NAUSEA
     Route: 042
     Dates: start: 20140610, end: 20140610
  10. DECORTIN [Concomitant]
     Active Substance: PREDNISONE
     Indication: ANTIALLERGIC THERAPY
     Dosage: 100 MILLIGRAM DAILY;
     Route: 048
     Dates: start: 20140421, end: 20140429
  11. PREDNISONE. [Concomitant]
     Active Substance: PREDNISONE
     Indication: NAUSEA
     Dosage: 100 MG ON DAY 1-5 PER CYCLE
     Route: 048
     Dates: start: 20140428
  12. VOMEX [Concomitant]
     Active Substance: DIMENHYDRINATE
     Indication: VOMITING
     Route: 048
     Dates: start: 20140430, end: 20140430
  13. DOXORUBICIN [Concomitant]
     Active Substance: DOXORUBICIN
     Indication: NON-HODGKIN^S LYMPHOMA
     Dosage: LAST DOSE PRIOR AE: 10-JUN-2014
     Route: 042
     Dates: start: 20140429
  14. UROMITEXAN [Concomitant]
     Active Substance: MESNA
     Route: 042
     Dates: start: 20140429
  15. COTRIM D.S. [Concomitant]
     Active Substance: SULFAMETHOXAZOLE\TRIMETHOPRIM
     Indication: BACTERIAL INFECTION
     Dosage: 960 MG 2X2 PER WEEK
     Route: 048
     Dates: start: 20140429
  16. TAVEGIL [Concomitant]
     Active Substance: CLEMASTINE FUMARATE
     Indication: ANTIALLERGIC THERAPY
     Route: 042
     Dates: start: 20140428
  17. VINCRISTINE [Suspect]
     Active Substance: VINCRISTINE
     Indication: NON-HODGKIN^S LYMPHOMA
     Dosage: LAST DOSE PRIOR AE: 10-JUN-2014
     Route: 042
     Dates: start: 20140429, end: 20140610
  18. CYCLOPHOSPHAMIDE. [Concomitant]
     Active Substance: CYCLOPHOSPHAMIDE
     Indication: NON-HODGKIN^S LYMPHOMA
     Dosage: LAST DOSE PRIOR AE: 10-JUN-2014
     Route: 042
     Dates: start: 20140429
  19. ALOXI [Concomitant]
     Active Substance: PALONOSETRON HYDROCHLORIDE
     Indication: NAUSEA
     Route: 042
     Dates: start: 20140428
  20. RANTIC [Concomitant]
     Indication: PROPHYLAXIS
     Route: 042
     Dates: start: 20140429
  21. STEROFUNDIN [Concomitant]
     Indication: CHILLS
  22. DOLANTIN [Concomitant]
     Active Substance: MEPERIDINE
     Indication: CHILLS

REACTIONS (1)
  - Polyneuropathy [Recovered/Resolved]

NARRATIVE: CASE EVENT DATE: 20140611
